FAERS Safety Report 16011338 (Version 2)
Quarter: 2019Q1

REPORT INFORMATION
  Report Type: Spontaneous
  Country: US (occurrence: US)
  Receive Date: 20190227
  Receipt Date: 20190328
  Transmission Date: 20190418
  Serious: No
  Sender: FDA-Public Use
  Company Number: US-BAYER-2019-041489

PATIENT
  Age: 65 Year
  Sex: Female
  Weight: 113.38 kg

DRUGS (2)
  1. CLARITIN [Suspect]
     Active Substance: LORATADINE
     Indication: NASOPHARYNGITIS
  2. CLARITIN [Suspect]
     Active Substance: LORATADINE
     Indication: ALLERGIC RESPIRATORY SYMPTOM
     Dosage: 1 DF
     Route: 048
     Dates: start: 201901, end: 201901

REACTIONS (3)
  - Extra dose administered [Unknown]
  - Product availability issue [None]
  - Malaise [Recovered/Resolved]

NARRATIVE: CASE EVENT DATE: 201901
